FAERS Safety Report 24679646 (Version 2)
Quarter: 2024Q4

REPORT INFORMATION
  Report Type: Spontaneous
  Country: TW (occurrence: TW)
  Receive Date: 20241129
  Receipt Date: 20241210
  Transmission Date: 20250114
  Serious: Yes (Hospitalization, Other)
  Sender: ROCHE
  Company Number: TW-CHUGAI-2024041098

PATIENT
  Age: 21 Year
  Sex: Female
  Weight: 48.2 kg

DRUGS (1)
  1. ACTEMRA [Suspect]
     Active Substance: TOCILIZUMAB
     Indication: Rheumatoid arthritis
     Dosage: 400 MILLIGRAM, ONCE/MONTH
     Route: 042
     Dates: start: 20230110, end: 20240914

REACTIONS (2)
  - Infection [Unknown]
  - Haemophagocytic lymphohistiocytosis [Not Recovered/Not Resolved]

NARRATIVE: CASE EVENT DATE: 20241015
